FAERS Safety Report 15330601 (Version 2)
Quarter: 2018Q3

REPORT INFORMATION
  Report Type: Spontaneous
  Country: BR (occurrence: BR)
  Receive Date: 20180829
  Receipt Date: 20180920
  Transmission Date: 20181010
  Serious: Yes (Hospitalization, Other)
  Sender: FDA-Public Use
  Company Number: BR-PFIZER INC-2018334014

PATIENT
  Age: 35 Year
  Sex: Male

DRUGS (2)
  1. LORAX [Interacting]
     Active Substance: LORAZEPAM
     Indication: SOCIAL AVOIDANT BEHAVIOUR
     Dosage: 2 MG, (SPLIT IN TWO PARTS / 1/2 OF 1 TABLET OF 2 MG AT 10 P.M. AND 1/2 OF 1 TABLET OF 2 MG AT NIGHT)
     Dates: start: 2013
  2. LORAX [Suspect]
     Active Substance: LORAZEPAM
     Indication: MENTAL DISORDER
     Dosage: 1/4 OF 1 TABLET OF 2 MG PER DAY
     Dates: start: 1975, end: 2013

REACTIONS (5)
  - Aortic dilatation [Recovered/Resolved]
  - Aggression [Recovered/Resolved]
  - Wrong technique in product usage process [Unknown]
  - Product use in unapproved indication [Unknown]
  - Alcohol interaction [Recovered/Resolved]

NARRATIVE: CASE EVENT DATE: 1975
